FAERS Safety Report 19492701 (Version 4)
Quarter: 2022Q3

REPORT INFORMATION
  Report Type: Spontaneous
  Country: PT (occurrence: PT)
  Receive Date: 20210705
  Receipt Date: 20220830
  Transmission Date: 20221026
  Serious: Yes (Death, Life-Threatening, Hospitalization, Other)
  Sender: FDA-Public Use
  Company Number: None

PATIENT
  Age: 72 Year
  Sex: Male

DRUGS (2)
  1. PITAVASTATIN [Suspect]
     Active Substance: PITAVASTATIN
     Indication: Dyslipidaemia
     Dosage: 4 MILLIGRAM, QD
     Route: 065
     Dates: start: 201911, end: 201912
  2. ATORVASTATIN CALCIUM [Suspect]
     Active Substance: ATORVASTATIN CALCIUM
     Indication: Dyslipidaemia
     Dosage: 40 MILLIGRAM, QD
     Route: 048

REACTIONS (8)
  - Respiratory tract infection [Fatal]
  - Pneumonia aspiration [Fatal]
  - Immune-mediated myositis [Not Recovered/Not Resolved]
  - Condition aggravated [Not Recovered/Not Resolved]
  - Product communication issue [Unknown]
  - Infection [Fatal]
  - Failure to suspend medication [Fatal]
  - Product administration error [Fatal]

NARRATIVE: CASE EVENT DATE: 20191201
